FAERS Safety Report 17810945 (Version 3)
Quarter: 2020Q3

REPORT INFORMATION
  Report Type: Report from Study
  Country: BR (occurrence: BR)
  Receive Date: 20200521
  Receipt Date: 20200730
  Transmission Date: 20201102
  Serious: Yes (Death, Hospitalization, Other)
  Sender: FDA-Public Use
  Company Number: NVSC2020BR092454

PATIENT
  Age: 75 Year
  Sex: Female

DRUGS (1)
  1. VOTRIENT [Suspect]
     Active Substance: PAZOPANIB HYDROCHLORIDE
     Indication: METASTATIC RENAL CELL CARCINOMA
     Dosage: 400 MG, BID (AT NIGHT)
     Route: 048
     Dates: start: 20200105, end: 20200406

REACTIONS (20)
  - Death [Fatal]
  - Weight increased [Not Recovered/Not Resolved]
  - Renal failure [Recovered/Resolved]
  - Neoplasm progression [Not Recovered/Not Resolved]
  - Weight decreased [Recovering/Resolving]
  - Procedural complication [Unknown]
  - Fall [Unknown]
  - Oliguria [Recovered/Resolved]
  - Femur fracture [Unknown]
  - Vomiting [Recovering/Resolving]
  - Malaise [Recovered/Resolved]
  - Neoplasm malignant [Unknown]
  - Retching [Recovered/Resolved]
  - Drug ineffective [Not Recovered/Not Resolved]
  - Wound [Unknown]
  - Thrombosis [Recovered/Resolved]
  - Anaemia [Unknown]
  - Renal failure [Not Recovered/Not Resolved]
  - Vomiting [Recovered/Resolved]
  - Pain [Unknown]

NARRATIVE: CASE EVENT DATE: 202001
